FAERS Safety Report 8236183-5 (Version None)
Quarter: 2012Q1

REPORT INFORMATION
  Report Type: 
  Country: None (occurrence: None)
  Receive Date: 20120327
  Receipt Date: 20120320
  Transmission Date: 20120608
  Serious: No
  Sender: FDA-Public Use
  Company Number: US-BIOGENIDEC-2012BI009927

PATIENT
  Sex: Female

DRUGS (6)
  1. VICODIN [Concomitant]
  2. GABAPENTIN [Concomitant]
  3. TYSABRI [Suspect]
     Indication: MULTIPLE SCLEROSIS
     Route: 042
     Dates: start: 20120127
  4. AVONEX [Concomitant]
     Indication: MULTIPLE SCLEROSIS
     Route: 030
  5. NAPROXEN (ALEVE) [Concomitant]
  6. OXYCODONE HCL [Concomitant]

REACTIONS (4)
  - MULTIPLE SCLEROSIS RELAPSE [None]
  - RASH [None]
  - MUSCULOSKELETAL DISORDER [None]
  - BLADDER DISORDER [None]
